FAERS Safety Report 17686883 (Version 4)
Quarter: 2020Q3

REPORT INFORMATION
  Report Type: Spontaneous
  Country: JP (occurrence: JP)
  Receive Date: 20200421
  Receipt Date: 20200704
  Transmission Date: 20201102
  Serious: Yes (Hospitalization, Other)
  Sender: FDA-Public Use
  Company Number: JP-AMGEN-JPNSP2020063453

PATIENT
  Age: 76 Year
  Sex: Female
  Weight: 51.5 kg

DRUGS (36)
  1. FOSRENOL [Concomitant]
     Active Substance: LANTHANUM CARBONATE
     Dosage: 1500 MG, EVERYDAY
     Route: 048
     Dates: end: 20180625
  2. FOSRENOL [Concomitant]
     Active Substance: LANTHANUM CARBONATE
     Dosage: 750 MG, EVERYDAY
     Route: 048
     Dates: start: 20180626, end: 20181017
  3. OXAROL [Concomitant]
     Active Substance: MAXACALCITOL
     Dosage: 2.5 UG, Q56H
     Route: 065
     Dates: start: 20190917, end: 20191219
  4. OXAROL [Concomitant]
     Active Substance: MAXACALCITOL
     Dosage: 5 UG, Q56H
     Route: 065
     Dates: start: 20191221, end: 20200109
  5. OXAROL [Concomitant]
     Active Substance: MAXACALCITOL
     Dosage: 2.5 UG, Q56H
     Route: 065
     Dates: start: 20200111, end: 20200319
  6. NESP [Concomitant]
     Active Substance: DARBEPOETIN ALFA
     Dosage: 10 UG, QW
     Route: 065
     Dates: start: 20180522, end: 20180529
  7. NESP [Concomitant]
     Active Substance: DARBEPOETIN ALFA
     Dosage: 15 UG, QW
     Route: 065
     Dates: start: 20181127, end: 20181225
  8. NESP [Concomitant]
     Active Substance: DARBEPOETIN ALFA
     Dosage: 10 UG, QW
     Route: 065
     Dates: start: 20190101, end: 20190115
  9. NESP [Concomitant]
     Active Substance: DARBEPOETIN ALFA
     Dosage: 15 UG, QW
     Route: 065
     Dates: start: 20190416, end: 20190803
  10. OXAROL [Concomitant]
     Active Substance: MAXACALCITOL
     Dosage: 5 UG, Q56H
     Route: 065
     Dates: start: 20181018, end: 20181120
  11. OXAROL [Concomitant]
     Active Substance: MAXACALCITOL
     Dosage: 5 UG, Q56H
     Route: 065
     Dates: start: 20190202, end: 20190221
  12. CALTAN [Concomitant]
     Active Substance: CALCIUM CARBONATE
     Dosage: 1500 MG, EVERYDAY
     Route: 065
     Dates: start: 20181025, end: 20181031
  13. LANTHANUM CARBONATE. [Concomitant]
     Active Substance: LANTHANUM CARBONATE
     Dosage: 750 MG, EVERYDAY
     Route: 048
     Dates: start: 20190518, end: 20191111
  14. NESP [Concomitant]
     Active Substance: DARBEPOETIN ALFA
     Dosage: 15 UG, QW
     Route: 065
     Dates: end: 20180515
  15. NESP [Concomitant]
     Active Substance: DARBEPOETIN ALFA
     Dosage: 10 UG, QW
     Route: 065
     Dates: start: 20190326, end: 20190409
  16. OXAROL [Concomitant]
     Active Substance: MAXACALCITOL
     Dosage: 2.5 UG, Q56H
     Route: 065
     Dates: start: 20180929, end: 20181004
  17. OXAROL [Concomitant]
     Active Substance: MAXACALCITOL
     Dosage: 5 UG, Q56H
     Route: 065
     Dates: start: 20190817, end: 20190914
  18. PARSABIV [Suspect]
     Active Substance: ETELCALCETIDE HYDROCHLORIDE
     Indication: HYPERPARATHYROIDISM SECONDARY
     Dosage: 5 MG, Q56H
     Route: 010
     Dates: start: 20180519, end: 20181016
  19. PARSABIV [Suspect]
     Active Substance: ETELCALCETIDE HYDROCHLORIDE
     Dosage: 2.5 MG, Q56H
     Route: 010
     Dates: start: 20181208, end: 20181220
  20. FESIN [SACCHARATED IRON OXIDE] [Concomitant]
     Active Substance: IRON SUCROSE
     Dosage: 40 MILLIGRAM, QWK
     Route: 065
     Dates: end: 20180517
  21. PARSABIV [Suspect]
     Active Substance: ETELCALCETIDE HYDROCHLORIDE
     Dosage: 5 MG, Q56H
     Route: 010
     Dates: start: 20181101, end: 20181120
  22. PARSABIV [Suspect]
     Active Substance: ETELCALCETIDE HYDROCHLORIDE
     Dosage: 5 MG, Q56H
     Route: 010
     Dates: start: 20181222
  23. NESP [Concomitant]
     Active Substance: DARBEPOETIN ALFA
     Dosage: 10 UG, QW
     Route: 065
     Dates: start: 20180918, end: 20180925
  24. OXAROL [Concomitant]
     Active Substance: MAXACALCITOL
     Dosage: 2.5 UG, Q56H
     Route: 065
     Dates: start: 20190223, end: 20190409
  25. OXAROL [Concomitant]
     Active Substance: MAXACALCITOL
     Dosage: 2.5 UG, Q56H
     Route: 065
     Dates: start: 20190615, end: 20190815
  26. CALTAN [Concomitant]
     Active Substance: CALCIUM CARBONATE
     Dosage: 3000 MG, EVERYDAY
     Route: 065
     Dates: start: 20181018, end: 20181024
  27. LANTHANUM CARBONATE. [Concomitant]
     Active Substance: LANTHANUM CARBONATE
     Dosage: 750 MG, EVERYDAY
     Route: 048
     Dates: start: 20191126
  28. NESP [Concomitant]
     Active Substance: DARBEPOETIN ALFA
     Dosage: 15 UG, QW
     Route: 065
     Dates: start: 20180605, end: 20180911
  29. OXAROL [Concomitant]
     Active Substance: MAXACALCITOL
     Dosage: 5 UG, Q56H
     Route: 065
     Dates: start: 20180821, end: 20180927
  30. OXAROL [Concomitant]
     Active Substance: MAXACALCITOL
     Dosage: 5 UG, Q56H
     Route: 065
     Dates: start: 20190411, end: 20190612
  31. FESIN [SACCHARATED IRON OXIDE] [Concomitant]
     Active Substance: IRON SUCROSE
     Dosage: 40 MILLIGRAM, QWK
     Route: 065
     Dates: start: 20180726, end: 20180906
  32. FOSRENOL [Concomitant]
     Active Substance: LANTHANUM CARBONATE
     Dosage: 1500 MG, EVERYDAY
     Route: 048
     Dates: start: 20190110, end: 20190204
  33. FOSRENOL [Concomitant]
     Active Substance: LANTHANUM CARBONATE
     Dosage: 750 MG, EVERYDAY
     Route: 048
     Dates: start: 20190205, end: 20190304
  34. NESP [Concomitant]
     Active Substance: DARBEPOETIN ALFA
     Dosage: 10 UG, QW
     Route: 065
     Dates: start: 20181113, end: 20181120
  35. OXAROL [Concomitant]
     Active Substance: MAXACALCITOL
     Dosage: 10 UG, Q56H
     Route: 065
     Dates: start: 20181122, end: 20190131
  36. FESIN [SACCHARATED IRON OXIDE] [Concomitant]
     Active Substance: IRON SUCROSE
     Dosage: 40 MILLIGRAM, QWK
     Route: 065
     Dates: start: 20191109, end: 20191226

REACTIONS (2)
  - Cataract [Recovered/Resolved]
  - Large intestine polyp [Recovering/Resolving]

NARRATIVE: CASE EVENT DATE: 20190614
